FAERS Safety Report 20557233 (Version 3)
Quarter: 2022Q1

REPORT INFORMATION
  Report Type: Spontaneous
  Country: DE (occurrence: DE)
  Receive Date: 20220307
  Receipt Date: 20220330
  Transmission Date: 20220423
  Serious: Yes (Other)
  Sender: FDA-Public Use
  Company Number: DE-PFIZER INC-202200303240

PATIENT
  Age: 75 Year
  Sex: Male
  Weight: 120 kg

DRUGS (11)
  1. DALTEPARIN SODIUM [Suspect]
     Active Substance: DALTEPARIN SODIUM
     Dosage: 5000 IU/ 0.2 ML, 1X/DAY, SYRINGE
     Dates: start: 20220207
  2. METAMIZOLE [Suspect]
     Active Substance: METAMIZOLE
     Route: 048
  3. OXYCODON HCL HORMOSAN [Concomitant]
     Dosage: 10 MG, 2X/DAY
     Route: 048
  4. OXYCODONE HYDROCHLORIDE [Concomitant]
     Active Substance: OXYCODONE HYDROCHLORIDE
     Dosage: 5 MG, AS NEEDED EVERY 6 HOUR 1X1
  5. ENTRESTO [Concomitant]
     Active Substance: SACUBITRIL\VALSARTAN
     Dosage: 48.6 / 51.4 MG, 2X/DAY
     Route: 048
  6. METOPROLOLSUCCINAT BIOEQ PHARMA [Concomitant]
     Dosage: 95 MG, 1X/DAY
     Route: 048
  7. AMLODIGAMMA TOP [Concomitant]
     Dosage: 5 MG, 1 AND 1/2 PER DAY
     Route: 048
  8. PANTOPRAZOLE SODIUM [Concomitant]
     Active Substance: PANTOPRAZOLE SODIUM
     Dosage: 40 MG, 2X/DAY
     Route: 048
  9. TORSEMIDE [Concomitant]
     Active Substance: TORSEMIDE
     Dosage: 10 MG, 2X/DAY
     Route: 048
  10. TAMSULOSIN [Concomitant]
     Active Substance: TAMSULOSIN
     Dosage: 0.4 MG, 1X/DAY
     Route: 048
  11. SPIRONOLACTONE [Concomitant]
     Active Substance: SPIRONOLACTONE
     Dosage: 50 MG, 1X/DAY
     Route: 048

REACTIONS (1)
  - Intra-abdominal haematoma [Unknown]
